FAERS Safety Report 17321856 (Version 1)
Quarter: 2020Q1

REPORT INFORMATION
  Report Type: Spontaneous
  Country: US (occurrence: US)
  Receive Date: 20200127
  Receipt Date: 20200127
  Transmission Date: 20200409
  Serious: Yes (Other)
  Sender: FDA-Public Use
  Company Number: US-MTPC-MTDA2020-0040543

PATIENT

DRUGS (2)
  1. RADICAVA [Suspect]
     Active Substance: EDARAVONE
     Dosage: 60 MILLIGRAM, QD FOR 10 DAYS OUT OF 14-DAY PERIODS, FOLLOWED BY 14*DAY DRUG-FREE PERIOD
     Route: 042
  2. RADICAVA [Suspect]
     Active Substance: EDARAVONE
     Indication: AMYOTROPHIC LATERAL SCLEROSIS
     Dosage: 60 MILLIGRAM, QD FOR 14 DAYS FOLLOWED BY A 14-DAY DRUG-FREE PERIOD
     Route: 042
     Dates: start: 20180213

REACTIONS (2)
  - Mechanical ventilation [Unknown]
  - Catheter site infection [Unknown]
